FAERS Safety Report 10182244 (Version 2)
Quarter: 2014Q2

REPORT INFORMATION
  Report Type: Spontaneous
  Country: IT (occurrence: IT)
  Receive Date: 20140520
  Receipt Date: 20140613
  Transmission Date: 20141212
  Serious: Yes (Hospitalization)
  Sender: FDA-Public Use
  Company Number: IT-ROCHE-1404023

PATIENT
  Age: 41 Year
  Sex: Female

DRUGS (3)
  1. MABTHERA [Suspect]
     Indication: SYSTEMIC LUPUS ERYTHEMATOSUS
     Route: 042
     Dates: start: 20140423, end: 20140507
  2. LANSOPRAZOLE [Concomitant]
  3. SIMVASTATINE [Concomitant]

REACTIONS (6)
  - Back pain [Recovered/Resolved]
  - Cyanosis [Recovered/Resolved]
  - Nausea [Recovered/Resolved]
  - Tachycardia [Recovered/Resolved]
  - Tremor [Recovered/Resolved]
  - Infusion related reaction [Recovered/Resolved]
